FAERS Safety Report 20124933 (Version 1)
Quarter: 2021Q4

REPORT INFORMATION
  Report Type: Spontaneous
  Country: US (occurrence: None)
  Receive Date: 20211126
  Receipt Date: 20211126
  Transmission Date: 20220303
  Serious: Yes (Death)
  Sender: FDA-Public Use
  Company Number: None

PATIENT
  Sex: Male

DRUGS (6)
  1. RYDAPT [Suspect]
     Active Substance: MIDOSTAURIN
     Indication: Leukaemia
     Dosage: TAKE 4 CAPSULES BY MOUTH TWICE DAILY (WITH FOOD)?
     Route: 048
     Dates: start: 20201230, end: 202110
  2. RYDAPT [Suspect]
     Active Substance: MIDOSTAURIN
     Indication: Malignant mast cell neoplasm
  3. ATORVASTATIN TAB 80MG [Concomitant]
  4. LISINOPRIL TAB 2.5MG [Concomitant]
  5. METOPROL SUC TAB 25MG [Concomitant]
  6. OMEPRAZOLE [Concomitant]
     Active Substance: OMEPRAZOLE

REACTIONS (1)
  - Death [None]
